FAERS Safety Report 7916280-1 (Version None)
Quarter: 2011Q4

REPORT INFORMATION
  Report Type: 
  Country: None (occurrence: None)
  Receive Date: 20111116
  Receipt Date: 20111107
  Transmission Date: 20120403
  Serious: No
  Sender: FDA-Public Use
  Company Number: US-BIOGENIDEC-2011BI042591

PATIENT
  Age: 33 Year
  Sex: Female

DRUGS (3)
  1. TYSABRI [Suspect]
     Indication: MULTIPLE SCLEROSIS
     Route: 042
     Dates: start: 20110822
  2. COPAXONE [Concomitant]
     Indication: MULTIPLE SCLEROSIS
     Dates: start: 20090101, end: 20110801
  3. GILENYA [Concomitant]
     Indication: MULTIPLE SCLEROSIS
     Dates: start: 20110801, end: 20110801

REACTIONS (3)
  - HEART RATE DECREASED [None]
  - ASTHENIA [None]
  - HEADACHE [None]
